FAERS Safety Report 4938678-6 (Version None)
Quarter: 2006Q1

REPORT INFORMATION
  Report Type: 
  Country: None (occurrence: None)
  Receive Date: 20060309
  Receipt Date: 20060301
  Transmission Date: 20060701
  Serious: Yes (Other)
  Sender: FDA-Public Use
  Company Number: PHFR2006MT01029

PATIENT
  Age: 33 Year
  Sex: Male

DRUGS (3)
  1. LESCOL XL [Suspect]
     Indication: HYPERLIPIDAEMIA
     Dosage: 80 MG/DAY
     Route: 048
     Dates: start: 20050501, end: 20051201
  2. LESCOL XL [Suspect]
     Route: 048
     Dates: start: 20060220
  3. NATRILIX [Concomitant]
     Route: 048

REACTIONS (2)
  - INFERTILITY MALE [None]
  - SPERMATOGENESIS ABNORMAL [None]
